FAERS Safety Report 5606003-3 (Version None)
Quarter: 2008Q1

REPORT INFORMATION
  Report Type: 
  Country: None (occurrence: None)
  Receive Date: 20080129
  Receipt Date: 20080116
  Transmission Date: 20080703
  Serious: Yes (Disabling, Other)
  Sender: FDA-Public Use
  Company Number: GB-ELI_LILLY_AND_COMPANY-GB200801003793

PATIENT
  Sex: Male

DRUGS (2)
  1. CIALIS [Suspect]
     Indication: ERECTILE DYSFUNCTION
     Dosage: UNK, UNKNOWN
     Route: 048
  2. MUSE [Concomitant]
     Indication: ERECTILE DYSFUNCTION
     Dosage: 250 UG, UNKNOWN
     Route: 066
     Dates: start: 20071109

REACTIONS (1)
  - BLINDNESS [None]
